FAERS Safety Report 11328134 (Version 1)
Quarter: 2015Q3

REPORT INFORMATION
  Report Type: Not Available
  Country: GB (occurrence: GB)
  Receive Date: 20150731
  Receipt Date: 20150731
  Transmission Date: 20151125
  Serious: Yes (Other)
  Sender: FDA-Public Use
  Company Number: GB-MUNDIPHARMA DS AND PHARMACOVIGILANCE-GBR-2015-0029822

PATIENT
  Age: 72 Year
  Sex: Male
  Weight: 73 kg

DRUGS (10)
  1. CLOPIDOGREL [Concomitant]
     Active Substance: CLOPIDOGREL BISULFATE
     Dosage: 75 MG, UNK
  2. MIRTAZAPINE. [Concomitant]
     Active Substance: MIRTAZAPINE
     Dosage: 15 MG, UNK
  3. BUPRENORPHINE. [Suspect]
     Active Substance: BUPRENORPHINE
     Dosage: 52.5 MCG, Q1H
     Route: 065
  4. ATORVASTATIN CALCIUM. [Interacting]
     Active Substance: ATORVASTATIN CALCIUM
     Indication: STENT PLACEMENT
     Dosage: 80 MG, UNK
     Route: 048
     Dates: start: 20150215, end: 20150627
  5. LOSARTAN POTASSIUM. [Concomitant]
     Active Substance: LOSARTAN POTASSIUM
     Dosage: 50 MG, UNK
  6. MACROGOL 3350 [Concomitant]
     Active Substance: POLYETHYLENE GLYCOL 3350
     Dosage: UNK
  7. PHENOXYMETHYLPENICILLIN POTASSIUM [Concomitant]
     Active Substance: PENICILLIN V POTASSIUM
     Dosage: 250 MG, UNK
  8. ASPIRIN. [Concomitant]
     Active Substance: ASPIRIN
     Dosage: 75 MG, UNK
  9. BISOPROLOL FUMARATE. [Concomitant]
     Active Substance: BISOPROLOL FUMARATE
     Dosage: 5 MG, UNK
  10. PREGABALIN. [Concomitant]
     Active Substance: PREGABALIN
     Dosage: 75 MG, UNK

REACTIONS (4)
  - Sensory disturbance [Unknown]
  - Muscular weakness [Unknown]
  - Drug interaction [Unknown]
  - Myalgia [Unknown]

NARRATIVE: CASE EVENT DATE: 20150620
